FAERS Safety Report 7031448-7 (Version None)
Quarter: 2010Q4

REPORT INFORMATION
  Report Type: 
  Country: None (occurrence: None)
  Receive Date: 20101006
  Receipt Date: 20100928
  Transmission Date: 20110411
  Serious: Yes (Other)
  Sender: FDA-Public Use
  Company Number: US-ELI_LILLY_AND_COMPANY-US201006001671

PATIENT
  Sex: Female
  Weight: 78.458 kg

DRUGS (44)
  1. BYETTA [Suspect]
     Indication: TYPE 2 DIABETES MELLITUS
     Dosage: 5 UG, 2/D
     Route: 058
     Dates: start: 20070514, end: 20070928
  2. BYETTA [Suspect]
     Dosage: 10 UG, 2/D
     Route: 058
     Dates: start: 20070928, end: 20071029
  3. BYETTA [Suspect]
     Dosage: 5 UG, 2/D
     Route: 058
     Dates: start: 20071029, end: 20091117
  4. PLAVIX [Concomitant]
     Dosage: 75 MG, DAILY (1/D)
     Route: 048
  5. CARVEDILOL [Concomitant]
     Dosage: 25 MG, 2/D
     Route: 048
  6. CARVEDILOL [Concomitant]
     Dosage: 25 MG, 1/2 PILL TWICE DAILY
  7. LISINOPRIL [Concomitant]
     Dosage: 20 MG, DAILY (1/D)
     Route: 048
  8. LASIX [Concomitant]
     Dosage: 40 MG, 3/W
     Route: 048
  9. NEURONTIN [Concomitant]
     Dosage: 400 MG, EACH EVENING
     Route: 048
  10. NEURONTIN [Concomitant]
     Dosage: 400 MG, 3/D
  11. NEURONTIN [Concomitant]
     Dosage: 100 MG, 2 CAPSULES TWICE DAILY
  12. CRESTOR [Concomitant]
     Dosage: 20 MG, DAILY (1/D)
     Route: 048
  13. PEPCID [Concomitant]
     Dosage: 20 MG, DAILY (1/D)
     Route: 048
  14. GLYBURIDE [Concomitant]
     Indication: TYPE 2 DIABETES MELLITUS
     Dosage: 5 MG, EACH EVENING
     Route: 048
  15. METFORMIN [Concomitant]
  16. TRICOR [Concomitant]
     Dosage: 145 MG, DAILY (1/D)
     Route: 048
  17. LIPITOR [Concomitant]
     Dosage: 40 MG, DAILY (1/D)
     Route: 048
  18. ZETIA [Concomitant]
     Dosage: 10 MG, DAILY (1/D)
     Route: 048
  19. ALTACE [Concomitant]
     Dosage: 5 MG, TWO TABLETS EVERY EVENING
     Route: 048
  20. GLIPIZIDE [Concomitant]
     Dosage: 10 MG, DAILY (1/D)
     Route: 048
  21. ASPIRIN [Concomitant]
     Dosage: 81 MG, DAILY (1/D)
     Route: 048
  22. ASPIRIN [Concomitant]
     Dosage: 325 MG, DAILY (1/D)
     Route: 048
  23. BENICAR [Concomitant]
     Dosage: 40-25 MG, DAILY (1/D)
     Route: 048
  24. BENICAR [Concomitant]
     Dosage: 80 MG/25 MG, DAILY (1/D)
  25. ZEGERID /06027801/ [Concomitant]
     Dosage: 40-1100 MG CAPS, EACH MORNING
     Route: 048
  26. SLOW-FE [Concomitant]
     Dosage: 160 MG, DAILY (1/D)
     Route: 048
  27. CYANOCOBALAMIN [Concomitant]
     Dosage: 1000 UG, MONTHLY (1/M)
     Route: 030
  28. TOPROL-XL [Concomitant]
     Dosage: 200 MG, DAILY (1/D)
     Route: 048
  29. GLUCOPHAGE [Concomitant]
     Dosage: 500 MG, TWO TABLETS BEFORE BREAKFAST AND TWO TABLETS BEFORE DINNER
  30. CO Q-10 [Concomitant]
     Dosage: 50 MG, DAILY (1/D)
     Route: 048
  31. MEDROL [Concomitant]
  32. HYCODAN [Concomitant]
     Dosage: 5 MG/1.5 MG, EVERY FOUR TO SIX HOURS
     Route: 048
  33. FERRLECIT [Concomitant]
     Dosage: 125 MG, UNKNOWN
     Route: 042
     Dates: start: 20080512
  34. FERRLECIT [Concomitant]
     Dosage: 125 MG, TODAY AND EVERY TWO WEEKS
     Dates: start: 20081114
  35. PROCTOFOAM HC [Concomitant]
     Dosage: 1 %, APPLY THREE TO FOUR TIMES DAILY TO RECTAL AREA FOR 2 WEEKS
     Route: 061
  36. ANALPRAM HC [Concomitant]
     Dosage: 1 %, APPLY TO RECTAL AREA TWO TO THREE TIMES DAILY FOR ONE WEEK
     Route: 061
  37. METOPROLOL TARTRATE [Concomitant]
     Dosage: 100 MG, 2 TABS TWICE DAILY
  38. MAGNESIUM OXIDE [Concomitant]
     Dosage: 400 MG, DAILY (1/D)
     Route: 048
  39. PERCOCET [Concomitant]
     Dosage: 1 D/F, AS NEEDED
  40. FLECTOR                            /00372302/ [Concomitant]
     Indication: PAIN
     Dosage: 1.3 %, 2/D
  41. PROCRIT [Concomitant]
     Dosage: 4000 U, FOR HGB{12 WHEN INDICATED BY MD
     Route: 058
  42. ANUSOL HC [Concomitant]
     Dosage: 1 D/F, 2/D
     Route: 054
  43. MACRODANTIN [Concomitant]
     Dosage: 50 MG, QOD
     Route: 048
  44. DARVOCET [Concomitant]
     Indication: PAIN
     Dosage: 100-650 MG, AS NEEDED EVERY SIX HOURS

REACTIONS (6)
  - CATHETERISATION CARDIAC [None]
  - NAUSEA [None]
  - NEPHROLITHIASIS [None]
  - RENAL ARTERY STENOSIS [None]
  - STENT PLACEMENT [None]
  - URINARY TRACT INFECTION [None]
